FAERS Safety Report 23927747 (Version 1)
Quarter: 2024Q2

REPORT INFORMATION
  Report Type: Spontaneous
  Country: US (occurrence: US)
  Receive Date: 20240531
  Receipt Date: 20240531
  Transmission Date: 20240716
  Serious: Yes (Other)
  Sender: FDA-Public Use
  Company Number: US-BEH-2024173140

PATIENT
  Age: 75 Year
  Sex: Female

DRUGS (1)
  1. HIZENTRA [Suspect]
     Active Substance: HUMAN IMMUNOGLOBULIN G
     Indication: Chronic inflammatory demyelinating polyradiculoneuropathy
     Route: 058

REACTIONS (5)
  - Autoimmune disorder [Unknown]
  - Injection site granuloma [Unknown]
  - Injection site mass [Unknown]
  - Injection site induration [Unknown]
  - Injection site pain [Unknown]
